FAERS Safety Report 12375800 (Version 6)
Quarter: 2018Q3

REPORT INFORMATION
  Report Type: Spontaneous
  Country: US (occurrence: US)
  Receive Date: 20160517
  Receipt Date: 20180720
  Transmission Date: 20181010
  Serious: Yes (Hospitalization, Other)
  Sender: FDA-Public Use
  Company Number: US-009507513-1605USA007857

PATIENT
  Sex: Female
  Weight: 99.77 kg

DRUGS (1)
  1. NUVARING [Suspect]
     Active Substance: ETHINYL ESTRADIOL\ETONOGESTREL
     Indication: CONTRACEPTION
     Dosage: INSERT 1 RING, LEAVE IN FOR 3 WEEKS, REMOVE FOR 1 WEEK, REPEAT WITH NEW RING
     Route: 067
     Dates: start: 20131206, end: 201405

REACTIONS (15)
  - Urticaria [Unknown]
  - Fatigue [Unknown]
  - Constipation [Unknown]
  - Deep vein thrombosis [Unknown]
  - Maternal exposure before pregnancy [Recovered/Resolved]
  - Abortion induced [Recovered/Resolved]
  - Bacterial vaginosis [Unknown]
  - Malaise [Unknown]
  - Dysmenorrhoea [Unknown]
  - Pulmonary embolism [Unknown]
  - Polycystic ovaries [Unknown]
  - Interstitial lung disease [Unknown]
  - Drug hypersensitivity [Unknown]
  - Costochondritis [Unknown]
  - Amenorrhoea [Unknown]

NARRATIVE: CASE EVENT DATE: 201405
